FAERS Safety Report 6451425-4 (Version None)
Quarter: 2009Q4

REPORT INFORMATION
  Report Type: 
  Country: None (occurrence: None)
  Receive Date: 20091118
  Receipt Date: 20090527
  Transmission Date: 20100525
  Serious: Yes (Hospitalization)
  Sender: FDA-Public Use
  Company Number: 2009BI010653

PATIENT
  Age: 63 Year
  Sex: Female

DRUGS (7)
  1. TYSABRI [Suspect]
     Indication: MULTIPLE SCLEROSIS
     Dosage: 300 MG;QM;IV
     Route: 042
     Dates: start: 20070705
  2. GABAPENTIN [Concomitant]
  3. ZANAFLEX [Concomitant]
  4. 4-AMINOPYRIDINE [Concomitant]
  5. FENTANYL [Concomitant]
  6. DETROL LA [Concomitant]
  7. PROZAC [Concomitant]

REACTIONS (12)
  - ACTIVITIES OF DAILY LIVING IMPAIRED [None]
  - ASTHENIA [None]
  - CONFUSIONAL STATE [None]
  - DECUBITUS ULCER [None]
  - DEHYDRATION [None]
  - DEPRESSION [None]
  - HYPERTENSION [None]
  - KIDNEY INFECTION [None]
  - MALNUTRITION [None]
  - MULTIPLE SCLEROSIS RELAPSE [None]
  - SECONDARY PROGRESSIVE MULTIPLE SCLEROSIS [None]
  - URINARY TRACT INFECTION [None]
